FAERS Safety Report 23343237 (Version 1)
Quarter: 2023Q4

REPORT INFORMATION
  Report Type: Spontaneous
  Country: US (occurrence: US)
  Receive Date: 20231227
  Receipt Date: 20231227
  Transmission Date: 20240110
  Serious: No
  Sender: FDA-Public Use
  Company Number: US-UPSHER-SMITH LABORATORIES, LLC-2023USL00200

PATIENT
  Age: 81 Year
  Sex: Female
  Weight: 60.635 kg

DRUGS (6)
  1. KLOR-CON M [Suspect]
     Active Substance: POTASSIUM CHLORIDE
     Indication: Blood potassium decreased
     Dosage: 1 TABLET, 2X/DAY EVERY OTHER DAY AND 1 TABLET, 3X/DAY EVERY OTHER DAY (2 TABLETS EVERY OTHER DAY AND
     Route: 048
     Dates: start: 1993, end: 2021
  2. KLOR-CON M [Suspect]
     Active Substance: POTASSIUM CHLORIDE
     Dosage: 1 TABLET, 2X/DAY EVERY OTHER DAY AND 1 TABLET, 3X/DAY EVERY OTHER DAY (2 TABLETS EVERY OTHER DAY AND
     Route: 048
     Dates: start: 2021
  3. KLOR-CON M [Suspect]
     Active Substance: POTASSIUM CHLORIDE
     Dosage: 1 TABLET, 2X/DAY ON MONDAY, WEDNESDAY, FRIDAY, AND SUNDAY, AND 3X/DAY ON TUESDAY, THURSDAY, AND SATU
     Route: 048
     Dates: end: 202211
  4. KLOR-CON M [Suspect]
     Active Substance: POTASSIUM CHLORIDE
     Dosage: 1 TABLET, 2X/DAY ON MONDAY, WEDNESDAY, FRIDAY, AND SUNDAY, AND 3X/DAY ON TUESDAY, THURSDAY, AND SATU
     Route: 048
     Dates: start: 202211
  5. FUROSEMIDE [Concomitant]
     Active Substance: FUROSEMIDE
     Dosage: UNK
  6. UNSPECIFIED INGREDIENT [Concomitant]
     Active Substance: UNSPECIFIED INGREDIENT
     Dosage: UNK

REACTIONS (15)
  - Hypersensitivity [Recovering/Resolving]
  - Glossodynia [Recovering/Resolving]
  - Swollen tongue [Recovering/Resolving]
  - Oropharyngeal pain [Recovering/Resolving]
  - Pharyngeal swelling [Recovering/Resolving]
  - Stomatitis [Recovering/Resolving]
  - Malaise [Recovering/Resolving]
  - Insomnia [Recovering/Resolving]
  - Fatigue [Recovering/Resolving]
  - Blood pressure decreased [Recovering/Resolving]
  - Mouth swelling [Recovering/Resolving]
  - Oral pain [Recovering/Resolving]
  - Cheilitis [Recovering/Resolving]
  - Upper-airway cough syndrome [Recovering/Resolving]
  - Asthenia [Unknown]

NARRATIVE: CASE EVENT DATE: 20221101
